FAERS Safety Report 25131069 (Version 1)
Quarter: 2025Q1

REPORT INFORMATION
  Report Type: Spontaneous
  Country: ES (occurrence: ES)
  Receive Date: 20250327
  Receipt Date: 20250327
  Transmission Date: 20250409
  Serious: Yes (Hospitalization, Other)
  Sender: MYLAN
  Company Number: ES-CINFAGATEW-2025000633

PATIENT
  Age: 31 Year
  Sex: Male

DRUGS (1)
  1. FINASTERIDE [Suspect]
     Active Substance: FINASTERIDE
     Indication: Alopecia

REACTIONS (12)
  - Mental disorder [Recovered/Resolved]
  - Erectile dysfunction [Unknown]
  - Suicidal ideation [Unknown]
  - Penis disorder [Not Recovered/Not Resolved]
  - Insomnia [Unknown]
  - Brain fog [Unknown]
  - Tachycardia [Unknown]
  - Disturbance in attention [Unknown]
  - Anhedonia [Unknown]
  - Dysphonia [Unknown]
  - Anxiety [Unknown]
  - Libido decreased [Recovered/Resolved]

NARRATIVE: CASE EVENT DATE: 20210201
